FAERS Safety Report 12751383 (Version 1)
Quarter: 2016Q3

REPORT INFORMATION
  Report Type: Spontaneous
  Country: US (occurrence: US)
  Receive Date: 20160915
  Receipt Date: 20160915
  Transmission Date: 20161109
  Serious: Yes (Other)
  Sender: FDA-Public Use
  Company Number: US-BION-20160358

PATIENT
  Age: 53 Year
  Sex: Female

DRUGS (1)
  1. PROGESTERONE CAPSULES [Suspect]
     Active Substance: PROGESTERONE
     Dosage: 1 DF QID
     Dates: end: 20160803

REACTIONS (1)
  - Vaginal haemorrhage [Not Recovered/Not Resolved]
